FAERS Safety Report 19359312 (Version 6)
Quarter: 2022Q1

REPORT INFORMATION
  Report Type: Spontaneous
  Country: JP (occurrence: JP)
  Receive Date: 20210601
  Receipt Date: 20220110
  Transmission Date: 20220423
  Serious: Yes (Death, Other)
  Sender: FDA-Public Use
  Company Number: JP-KYOWAKIRIN-2021AKK009130

PATIENT
  Age: 81 Year
  Sex: Male

DRUGS (8)
  1. DARBEPOETIN ALFA [Suspect]
     Active Substance: DARBEPOETIN ALFA
     Indication: Nephrogenic anaemia
     Dosage: 180 MICROGRAM, QWK
     Route: 065
     Dates: start: 20210515
  2. DARBEPOETIN ALFA [Suspect]
     Active Substance: DARBEPOETIN ALFA
     Dosage: 180 MICROGRAM, QWK
     Route: 065
  3. DAPRODUSTAT [Suspect]
     Active Substance: DAPRODUSTAT
     Indication: Nephrogenic anaemia
     Dosage: 4 MILLIGRAM
     Route: 048
     Dates: start: 20210301
  4. DAPRODUSTAT [Suspect]
     Active Substance: DAPRODUSTAT
     Dosage: 6 MILLIGRAM
     Route: 048
     Dates: start: 20210329, end: 20210515
  5. ASPIRIN [Concomitant]
     Active Substance: ASPIRIN
     Indication: Peripheral arterial occlusive disease
     Dosage: 100 MILLIGRAM
     Route: 065
  6. ASPIRIN [Concomitant]
     Active Substance: ASPIRIN
     Indication: Prophylaxis
     Dosage: UNK
  7. LIMAPROST [Concomitant]
     Active Substance: LIMAPROST
     Indication: Peripheral arterial occlusive disease
     Dosage: 10 MICROGRAM, BID
     Route: 048
  8. LIMAPROST [Concomitant]
     Active Substance: LIMAPROST
     Indication: Prophylaxis
     Dosage: UNK

REACTIONS (2)
  - Device related thrombosis [Recovered/Resolved]
  - Myocardial ischaemia [Fatal]

NARRATIVE: CASE EVENT DATE: 20210313
